FAERS Safety Report 14244969 (Version 2)
Quarter: 2018Q1

REPORT INFORMATION
  Report Type: Spontaneous
  Country: AU (occurrence: AU)
  Receive Date: 20171201
  Receipt Date: 20180112
  Transmission Date: 20180508
  Serious: Yes (Other)
  Sender: FDA-Public Use
  Company Number: AU-VISTAPHARM, INC.-VER201711-001202

PATIENT
  Age: 10 Year
  Sex: Male
  Weight: 28 kg

DRUGS (1)
  1. METOCLOPRAMIDE. [Suspect]
     Active Substance: METOCLOPRAMIDE
     Indication: VOMITING
     Dosage: 10 MG OVER A 24 H PERIOD
     Route: 048

REACTIONS (3)
  - Spasmodic dysphonia [Unknown]
  - Anxiety [Unknown]
  - Respiratory distress [Unknown]
